FAERS Safety Report 5024931-7 (Version None)
Quarter: 2006Q2

REPORT INFORMATION
  Report Type: 
  Country: None (occurrence: None)
  Receive Date: 20060607
  Receipt Date: 20060502
  Transmission Date: 20061013
  Serious: Yes (Death, Other)
  Sender: FDA-Public Use
  Company Number: FR-2004-028837

PATIENT
  Age: 79 Year
  Sex: Male
  Weight: 90 kg

DRUGS (9)
  1. MAGNEVIST [Suspect]
     Indication: COMPUTERISED TOMOGRAM
     Dosage: 27 MMOL, 1 DOSE, INTRAVENOUS
     Route: 042
     Dates: start: 20040505, end: 20040505
  2. KARDEGIC /FRA/ (ACETYLSALICYLATE LYSINE) [Concomitant]
  3. ZOCOR [Concomitant]
  4. OMEPRAZOLE [Concomitant]
  5. RAMIPRIL [Concomitant]
  6. ADANCOR (NICORANDIL) [Concomitant]
  7. LASILIX [Concomitant]
  8. INNOHEP [Concomitant]
  9. OXYGEN (OXYGEN) [Concomitant]

REACTIONS (7)
  - DISEASE PROGRESSION [None]
  - HEPATIC NEOPLASM MALIGNANT [None]
  - MALIGNANT NEOPLASM PROGRESSION [None]
  - MULTI-ORGAN FAILURE [None]
  - PULMONARY EMBOLISM [None]
  - RENAL FAILURE [None]
  - RENAL VESSEL DISORDER [None]
